FAERS Safety Report 7166554-X (Version None)
Quarter: 2010Q4

REPORT INFORMATION
  Report Type: 
  Country: None (occurrence: None)
  Receive Date: 20101216
  Receipt Date: 20101208
  Transmission Date: 20110411
  Serious: Yes (Other)
  Sender: FDA-Public Use
  Company Number: DE-SANOFI-AVENTIS-2010SA050121

PATIENT
  Sex: Male
  Weight: 147 kg

DRUGS (5)
  1. TELFAST [Suspect]
     Route: 048
     Dates: start: 20041011, end: 20050601
  2. ANTIHYPERTENSIVES [Concomitant]
  3. CHOLESTEROL- AND TRIGLYCERIDE REDUCERS [Concomitant]
  4. IBUPROFEN [Concomitant]
  5. DICLOFENAC [Concomitant]

REACTIONS (5)
  - CHONDROLYSIS [None]
  - DIABETES MELLITUS [None]
  - LIVER DISORDER [None]
  - SPLEEN DISORDER [None]
  - UNEVALUABLE EVENT [None]
